FAERS Safety Report 7577945-7 (Version None)
Quarter: 2011Q2

REPORT INFORMATION
  Report Type: 
  Country: None (occurrence: None)
  Receive Date: 20110628
  Receipt Date: 20110623
  Transmission Date: 20111010
  Serious: Yes (Death)
  Sender: FDA-Public Use
  Company Number: PHHY2011MX56015

PATIENT
  Sex: Male

DRUGS (1)
  1. ZOLEDRONIC ACID [Suspect]
     Indication: OSTEOPOROSIS
     Dosage: 1 APPLICATION (5MG/100 ML) EACH YEAR
     Route: 042
     Dates: start: 20100101

REACTIONS (3)
  - MULTI-ORGAN FAILURE [None]
  - BRONCHITIS [None]
  - GASTRIC DISORDER [None]
